FAERS Safety Report 25823528 (Version 1)
Quarter: 2025Q3

REPORT INFORMATION
  Report Type: Spontaneous
  Country: US (occurrence: US)
  Receive Date: 20250919
  Receipt Date: 20250919
  Transmission Date: 20251021
  Serious: Yes (Hospitalization, Other)
  Sender: AUROBINDO
  Company Number: US-AUROBINDO-AUR-APL-2025-046778

PATIENT
  Age: 14 Year
  Sex: Male
  Weight: 54.2 kg

DRUGS (18)
  1. DEXMEDETOMIDINE HYDROCHLORIDE [Suspect]
     Active Substance: DEXMEDETOMIDINE HYDROCHLORIDE
     Indication: Asthmatic crisis
     Route: 040
  2. DEXMEDETOMIDINE HYDROCHLORIDE [Suspect]
     Active Substance: DEXMEDETOMIDINE HYDROCHLORIDE
     Route: 040
  3. DEXMEDETOMIDINE HYDROCHLORIDE [Suspect]
     Active Substance: DEXMEDETOMIDINE HYDROCHLORIDE
     Route: 040
  4. PREDNISONE [Suspect]
     Active Substance: PREDNISONE
     Indication: Asthmatic crisis
     Route: 048
  5. METHYLPREDNISOLONE [Suspect]
     Active Substance: METHYLPREDNISOLONE
     Indication: Asthmatic crisis
     Route: 042
  6. KETAMINE HYDROCHLORIDE [Suspect]
     Active Substance: KETAMINE HYDROCHLORIDE
     Indication: Asthmatic crisis
     Route: 040
  7. KETAMINE HYDROCHLORIDE [Suspect]
     Active Substance: KETAMINE HYDROCHLORIDE
     Route: 040
  8. MAGNESIUM SULFATE [Suspect]
     Active Substance: MAGNESIUM SULFATE
     Indication: Asthmatic crisis
     Route: 040
  9. MAGNESIUM SULFATE [Suspect]
     Active Substance: MAGNESIUM SULFATE
     Route: 040
  10. IPRATROPIUM BROMIDE [Suspect]
     Active Substance: IPRATROPIUM BROMIDE
     Indication: Asthmatic crisis
  11. IPRATROPIUM BROMIDE [Suspect]
     Active Substance: IPRATROPIUM BROMIDE
  12. ALBUTEROL [Suspect]
     Active Substance: ALBUTEROL
     Indication: Asthmatic crisis
  13. ALBUTEROL [Suspect]
     Active Substance: ALBUTEROL
  14. MAGNESIUM [Suspect]
     Active Substance: MAGNESIUM
     Indication: Asthmatic crisis
     Route: 042
  15. AMINOPHYLLINE [Suspect]
     Active Substance: AMINOPHYLLINE
     Indication: Asthmatic crisis
     Route: 042
  16. HELIOX [Suspect]
     Active Substance: OXYGEN
     Indication: Asthmatic crisis
     Route: 065
  17. LORAZEPAM [Concomitant]
     Active Substance: LORAZEPAM
     Indication: Anxiety
     Route: 065
  18. ROCURONIUM BROMIDE [Concomitant]
     Active Substance: ROCURONIUM BROMIDE
     Indication: Product used for unknown indication
     Route: 065

REACTIONS (1)
  - Drug ineffective [Unknown]
